FAERS Safety Report 6521435-7 (Version None)
Quarter: 2009Q4

REPORT INFORMATION
  Report Type: 
  Country: None (occurrence: None)
  Receive Date: 20091230
  Receipt Date: 20091223
  Transmission Date: 20100525
  Serious: Yes (Death, Hospitalization)
  Sender: FDA-Public Use
  Company Number: FR-ROCHE-676289

PATIENT
  Sex: Female

DRUGS (12)
  1. TAMIFLU [Suspect]
     Route: 048
     Dates: start: 20090923, end: 20090923
  2. KARDEGIC [Suspect]
     Indication: DRUG USE FOR UNKNOWN INDICATION
     Dosage: FORM:POWDER FOR DRINKABLE SOLUTION
     Route: 048
     Dates: start: 20090921
  3. NEXIUM [Concomitant]
     Dates: start: 20090923
  4. ZELITREX [Concomitant]
     Dosage: FREQ: 2 SINGLE INTAKE
     Route: 048
     Dates: end: 20090921
  5. LEVOTHYROXINE SODIUM [Concomitant]
     Dosage: FORM:DIVISIBLE TABLET
     Route: 048
     Dates: end: 20090921
  6. ACUPAN [Concomitant]
     Route: 048
     Dates: start: 20090922, end: 20090922
  7. ISOPTIN [Concomitant]
     Dosage: DRUG: ISOPTINE 240
  8. SKENAN [Concomitant]
     Dosage: DRUG:SKENAN, ACTISKENAN 5
  9. FORLAX [Concomitant]
  10. GAVISCON [Concomitant]
  11. LAROXYL [Concomitant]
  12. PRIMPERAN TAB [Concomitant]
     Indication: VOMITING

REACTIONS (4)
  - ABDOMINAL PAIN UPPER [None]
  - GASTROINTESTINAL HAEMORRHAGE [None]
  - MELAENA [None]
  - VOMITING [None]
